FAERS Safety Report 7783395-0 (Version None)
Quarter: 2011Q3

REPORT INFORMATION
  Report Type: 
  Country: None (occurrence: None)
  Receive Date: 20110926
  Receipt Date: 20110909
  Transmission Date: 20111222
  Serious: Yes (Other)
  Sender: FDA-Public Use
  Company Number: 20110639

PATIENT
  Age: 37 Year
  Sex: Female

DRUGS (5)
  1. COLCHICINE [Concomitant]
  2. VENOFER [Suspect]
     Dosage: 1 DOSE 200 MG, 1 DOSE 100 MG INTRAVENOUS
     Route: 042
     Dates: start: 20110101, end: 20110807
  3. PREVISCAN (FLUIDIONE) [Concomitant]
  4. TILDIEM (DILTIAZEM) [Concomitant]
  5. NIVAQUINE (CHLOROQUINE) [Concomitant]

REACTIONS (1)
  - HYPOTENSION [None]
